FAERS Safety Report 20035681 (Version 2)
Quarter: 2021Q4

REPORT INFORMATION
  Report Type: Spontaneous
  Country: US (occurrence: US)
  Receive Date: 20211104
  Receipt Date: 20211117
  Transmission Date: 20220304
  Serious: Yes (Death)
  Sender: FDA-Public Use
  Company Number: US-TEVA-2021-US-1972752

PATIENT
  Age: 65 Year
  Sex: Female

DRUGS (3)
  1. PREDNISONE [Suspect]
     Active Substance: PREDNISONE
     Indication: Bronchopulmonary aspergillosis
     Dosage: 60 MILLIGRAM DAILY;
     Route: 065
  2. PREDNISONE [Suspect]
     Active Substance: PREDNISONE
     Indication: Bronchopulmonary aspergillosis
     Dosage: 40 MILLIGRAM DAILY;
     Route: 065
  3. PREDNISONE [Suspect]
     Active Substance: PREDNISONE
     Indication: Bronchopulmonary aspergillosis
     Dosage: 60 MILLIGRAM DAILY; SHE WAS STARTED ON HIGH-DOSE STEROIDS AT 60MG PREDNISONE DAILY
     Route: 065

REACTIONS (1)
  - Bronchopulmonary aspergillosis [Fatal]
